FAERS Safety Report 20149797 (Version 3)
Quarter: 2022Q1

REPORT INFORMATION
  Report Type: Spontaneous
  Country: BR (occurrence: BR)
  Receive Date: 20211206
  Receipt Date: 20220206
  Transmission Date: 20220423
  Serious: Yes (Other)
  Sender: FDA-Public Use
  Company Number: BR-NOVARTISPH-NVSC2021BR275256

PATIENT
  Sex: Male

DRUGS (1)
  1. AMLODIPINE\VALSARTAN [Suspect]
     Active Substance: AMLODIPINE\VALSARTAN
     Indication: Product used for unknown indication
     Dosage: MANUFACTURING DATE OCT 2020
     Route: 065

REACTIONS (6)
  - Fear [Unknown]
  - Malaise [Unknown]
  - Hypertension [Unknown]
  - Dizziness [Unknown]
  - Product quality issue [Unknown]
  - Drug ineffective [Unknown]
